FAERS Safety Report 7358541-3 (Version None)
Quarter: 2011Q1

REPORT INFORMATION
  Report Type: 
  Country: None (occurrence: None)
  Receive Date: 20110317
  Receipt Date: 20091218
  Transmission Date: 20110831
  Serious: Yes (Hospitalization)
  Sender: FDA-Public Use
  Company Number: ES-SANOFI-AVENTIS-2009SA010409

PATIENT
  Age: 58 Year
  Sex: Male
  Weight: 68 kg

DRUGS (11)
  1. ALL OTHER THERAPEUTIC PRODUCTS [Concomitant]
     Dates: start: 20090101, end: 20091216
  2. SPIRIVA [Concomitant]
     Dates: start: 20090101, end: 20091216
  3. ACETAMINOPHEN [Concomitant]
     Dates: start: 20090101, end: 20091216
  4. HIBOR [Concomitant]
     Dates: start: 20080101, end: 20091216
  5. MIDAZOLAM [Concomitant]
     Dates: start: 20090101, end: 20091216
  6. PLACEBO [Suspect]
     Indication: NON-SMALL CELL LUNG CANCER
     Route: 042
     Dates: start: 20091210, end: 20091210
  7. DOCETAXEL [Suspect]
     Indication: NON-SMALL CELL LUNG CANCER
     Route: 042
     Dates: start: 20091210, end: 20091210
  8. PANTOPRAZOLE [Concomitant]
     Dates: start: 20080101
  9. VARIDASA [Concomitant]
     Dates: start: 20090101, end: 20091216
  10. CORTICOSTEROIDS [Concomitant]
  11. PREDNISONE TAB [Concomitant]
     Dates: start: 20090101, end: 20091216

REACTIONS (2)
  - ISCHAEMIC STROKE [None]
  - PNEUMONIA [None]
